FAERS Safety Report 18366922 (Version 1)
Quarter: 2020Q4

REPORT INFORMATION
  Report Type: Report from Study
  Country: GB (occurrence: GB)
  Receive Date: 20201009
  Receipt Date: 20201009
  Transmission Date: 20210114
  Serious: Yes (Other)
  Sender: FDA-Public Use
  Company Number: NVSC2020GB097305

PATIENT
  Age: 23 Year
  Sex: Male

DRUGS (1)
  1. HYRIMOZ [Suspect]
     Active Substance: ADALIMUMAB-ADAZ
     Indication: ANKYLOSING SPONDYLITIS
     Dosage: 40 MG EOW
     Route: 058
     Dates: start: 20200324

REACTIONS (4)
  - Product dose omission issue [Not Recovered/Not Resolved]
  - Back pain [Unknown]
  - Musculoskeletal stiffness [Unknown]
  - Oropharyngeal pain [Not Recovered/Not Resolved]

NARRATIVE: CASE EVENT DATE: 20200927
